FAERS Safety Report 20756696 (Version 1)
Quarter: 2022Q2

REPORT INFORMATION
  Report Type: Spontaneous
  Country: US (occurrence: None)
  Receive Date: 20220426
  Receipt Date: 20220426
  Transmission Date: 20220721
  Serious: No
  Sender: FDA-Public Use
  Company Number: None

PATIENT
  Age: 68 Year
  Sex: Female
  Weight: 99.5 kg

DRUGS (25)
  1. ZYDELIG [Suspect]
     Active Substance: IDELALISIB
     Indication: Hodgkin^s disease
     Dosage: FREQUENCY : TWICE A DAY;?
     Route: 048
  2. MAGNESIUM OXIDE [Concomitant]
     Active Substance: MAGNESIUM OXIDE
  3. CYANOCOBALAMIN [Concomitant]
     Active Substance: CYANOCOBALAMIN
  4. DOXEPIN HCL [Concomitant]
     Active Substance: DOXEPIN HYDROCHLORIDE
  5. ELIQUIS [Concomitant]
     Active Substance: APIXABAN
  6. FUROSEMIDE [Concomitant]
     Active Substance: FUROSEMIDE
  7. HYDROXYZINE HYDROCHLORIDE [Concomitant]
     Active Substance: HYDROXYZINE HYDROCHLORIDE
  8. LISINOPRIL [Concomitant]
     Active Substance: LISINOPRIL
  9. LOPRESSOR [Concomitant]
     Active Substance: METOPROLOL TARTRATE
  10. MONTELUKAST SODIUM [Concomitant]
     Active Substance: MONTELUKAST SODIUM
  11. TRAMADOL HCL [Concomitant]
     Active Substance: TRAMADOL HYDROCHLORIDE
  12. DULOXETINE HYDROCHLORIDE [Concomitant]
     Active Substance: DULOXETINE HYDROCHLORIDE
  13. PROPFENONE HCL [Concomitant]
  14. RITUXAN HYCELA [Concomitant]
     Active Substance: HYALURONIDASE (HUMAN RECOMBINANT)\RITUXIMAB
  15. ZOFRAN [Concomitant]
     Active Substance: ONDANSETRON HYDROCHLORIDE
  16. CHOLESTYRAMINE LIGHT ORAL POWDER 4 [Concomitant]
  17. CYANOCOBALAMIN INJECTION SOLUTION 1 [Concomitant]
  18. FUROSEMIDE ORAL TABLET [Concomitant]
  19. LOMOTIL ORAL TABLET [Concomitant]
  20. MEPRON [Concomitant]
     Active Substance: ATOVAQUONE
  21. HYDROXYZINE HC ORAL TABLET [Concomitant]
  22. METROCREAM EXTERNAL CREAM [Concomitant]
  23. PROPAFENONE HCL ORAL TABLET [Concomitant]
  24. TRIAMCINOLONE ACETATE EXTERNAL CR [Concomitant]
  25. ZYDELIG TABLET [Concomitant]

REACTIONS (2)
  - Infection [None]
  - Pneumonia [None]

NARRATIVE: CASE EVENT DATE: 20220419
